FAERS Safety Report 4311131-9 (Version None)
Quarter: 2004Q1

REPORT INFORMATION
  Report Type: 
  Country: None (occurrence: None)
  Receive Date: 20040302
  Receipt Date: 20040302
  Transmission Date: 20041129
  Serious: Yes (Other)
  Sender: FDA-Public Use
  Company Number: None

PATIENT
  Sex: Male

DRUGS (1)
  1. METFORMIN HCL [Suspect]
     Indication: DIABETES MELLITUS
     Dosage: BY MOUTH TWICE DAILY
     Dates: start: 20040126, end: 20040222

REACTIONS (2)
  - DIABETES MELLITUS INADEQUATE CONTROL [None]
  - PHARMACEUTICAL PRODUCT COMPLAINT [None]
